FAERS Safety Report 13406874 (Version 1)
Quarter: 2017Q2

REPORT INFORMATION
  Report Type: Spontaneous
  Country: FI (occurrence: FI)
  Receive Date: 20170405
  Receipt Date: 20170405
  Transmission Date: 20170830
  Serious: Yes (Hospitalization, Other)
  Sender: FDA-Public Use
  Company Number: FI-PFIZER INC-2017146333

PATIENT
  Sex: Male

DRUGS (13)
  1. ROSUVASTATIN SANDOZ [Suspect]
     Active Substance: ROSUVASTATIN CALCIUM
     Dosage: UNK
     Route: 048
  2. ROSUVASTATIN SANDOZ [Suspect]
     Active Substance: ROSUVASTATIN CALCIUM
     Dosage: UNK
     Route: 048
  3. EMCONCOR CHF [Concomitant]
     Active Substance: BISOPROLOL FUMARATE
     Dosage: UNK
  4. MAREVAN [Concomitant]
     Active Substance: WARFARIN SODIUM
     Dosage: UNK
  5. KALCIPOS-D [Suspect]
     Active Substance: CALCIUM CARBONATE\CHOLECALCIFEROL
     Dosage: UNK
     Route: 048
  6. ROSUVASTATIN SANDOZ [Suspect]
     Active Substance: ROSUVASTATIN CALCIUM
     Dosage: UNK
     Route: 048
  7. MEMANTINE /00646902/ [Suspect]
     Active Substance: MEMANTINE HYDROCHLORIDE
     Dosage: UNK
     Route: 048
  8. AMLODIPINE MESILATE MONOHYDRATE [Concomitant]
     Active Substance: AMLODIPINE MESYLATE
     Dosage: UNK
  9. SOMAC [Suspect]
     Active Substance: PANTOPRAZOLE SODIUM
     Dosage: UNK
     Route: 048
  10. FURESIS [Suspect]
     Active Substance: FUROSEMIDE
     Dosage: UNK
     Route: 048
  11. ROSUVASTATIN ORION [Suspect]
     Active Substance: ROSUVASTATIN
     Route: 048
  12. ROSUVASTATIN ACTAVIS [Suspect]
     Active Substance: ROSUVASTATIN
     Route: 048
  13. KALEROID [Suspect]
     Active Substance: POTASSIUM CHLORIDE
     Dosage: UNK
     Route: 048

REACTIONS (17)
  - Lung infection [Unknown]
  - Proteinuria [Unknown]
  - Diarrhoea [Unknown]
  - Body temperature decreased [Unknown]
  - Urinary retention [Unknown]
  - Pruritus [Unknown]
  - Memory impairment [Unknown]
  - Rash [Unknown]
  - Pyrexia [Unknown]
  - Urinary tract infection [Unknown]
  - Pyelonephritis [Unknown]
  - Blood urine [Unknown]
  - Dizziness [Unknown]
  - Confusional state [Unknown]
  - Pleural effusion [Unknown]
  - Dyspnoea [Unknown]
  - Headache [Unknown]
